FAERS Safety Report 7515955-6 (Version None)
Quarter: 2011Q2

REPORT INFORMATION
  Report Type: 
  Country: None (occurrence: None)
  Receive Date: 20110601
  Receipt Date: 20110526
  Transmission Date: 20111010
  Serious: Yes (Life-Threatening, Hospitalization)
  Sender: FDA-Public Use
  Company Number: US-JNJFOC-20110512146

PATIENT
  Age: 53 Year
  Sex: Female

DRUGS (4)
  1. LORTAB [Concomitant]
     Indication: PAIN
     Route: 065
  2. LYRICA [Concomitant]
     Route: 065
  3. TOPAMAX [Concomitant]
     Route: 048
  4. NUCYNTA [Suspect]
     Indication: PAIN
     Route: 065
     Dates: start: 20110524, end: 20110524

REACTIONS (1)
  - ANAPHYLACTIC REACTION [None]
